FAERS Safety Report 15739142 (Version 1)
Quarter: 2018Q4

REPORT INFORMATION
  Report Type: Spontaneous
  Country: CH (occurrence: CH)
  Receive Date: 20181219
  Receipt Date: 20181219
  Transmission Date: 20190205
  Serious: Yes (Hospitalization, Disabling, Other)
  Sender: FDA-Public Use
  Company Number: CH-AMGEN-CHESP2018179073

PATIENT
  Age: 82 Year
  Sex: Female
  Weight: 68 kg

DRUGS (9)
  1. PANTOPRAZOL MEPHA [Concomitant]
     Active Substance: PANTOPRAZOLE SODIUM
     Dosage: 20 MG, QD
     Route: 048
  2. ACIDUM FOLICUM [Concomitant]
     Active Substance: FOLIC ACID
     Dosage: 1 DF, QD
     Route: 048
  3. XARELTO [Concomitant]
     Active Substance: RIVAROXABAN
     Dosage: 15MG 1XTGL
     Route: 048
     Dates: start: 20141201, end: 20180830
  4. KYPROLIS [Suspect]
     Active Substance: CARFILZOMIB
     Indication: PLASMA CELL MYELOMA
     Dosage: 56 MG/M2, CYCLICAL (DAYS 1, 2,8, 9,15, 16 EVERY 28 DAYS (56))
     Route: 042
     Dates: start: 20171205, end: 20181108
  5. VALTREX [Concomitant]
     Active Substance: VALACYCLOVIR HYDROCHLORIDE
     Indication: PROPHYLAXIS
     Dosage: 500 MG, 1-0-1
     Route: 048
     Dates: start: 2014
  6. ELIQUIS [Concomitant]
     Active Substance: APIXABAN
     Dosage: 2.5 MG, 2 X 2.5 MG PER DAY
     Route: 048
     Dates: start: 20180901
  7. DEXAMETHASON [Suspect]
     Active Substance: DEXAMETHASONE
     Indication: PLASMA CELL MYELOMA
     Dosage: 1 DF, CYCLICAL (SINCE 05-DEC-2017; 20 MG DAYS 1+2,8+9,15+16 EVERY 28 DAYS)
     Route: 048
     Dates: start: 2015, end: 20181108
  8. VITAMIN D3 STREULI [Concomitant]
     Active Substance: CHOLECALCIFEROL
     Dosage: 5 GTT, QD
     Route: 048
  9. BACTRIM [Concomitant]
     Active Substance: SULFAMETHOXAZOLE\TRIMETHOPRIM
     Dosage: 1 DF, ONCE A DAY ON MONDAYS, WEDNESDAYS, FRIDAYS
     Route: 048
     Dates: start: 2014

REACTIONS (3)
  - Aortic valve incompetence [Not Recovered/Not Resolved]
  - Ejection fraction decreased [Not Recovered/Not Resolved]
  - Condition aggravated [Not Recovered/Not Resolved]

NARRATIVE: CASE EVENT DATE: 20181114
